FAERS Safety Report 5090098-2 (Version None)
Quarter: 2006Q3

REPORT INFORMATION
  Report Type: 
  Country: None (occurrence: None)
  Receive Date: 20060823
  Receipt Date: 20060814
  Transmission Date: 20061208
  Serious: Yes (Other)
  Sender: FDA-Public Use
  Company Number: 2006098405

PATIENT
  Age: 57 Year
  Sex: Female
  Weight: 81.1939 kg

DRUGS (7)
  1. SOMAVERT [Suspect]
     Indication: ACROMEGALY
     Dosage: 10 MG (10 MG, DAILY), SUBCUTANEOUS
     Route: 058
     Dates: start: 20060628, end: 20060811
  2. LEVAQUIN [Concomitant]
  3. LEVOXYL [Concomitant]
  4. DDAVP (DESMOPRESSING) [Concomitant]
  5. DEXAMETHASONE TAB [Concomitant]
  6. HYDROCORTISONE [Concomitant]
  7. SIMVASTATIN [Concomitant]

REACTIONS (1)
  - MUSCLE HYPERTROPHY [None]
